FAERS Safety Report 23891096 (Version 1)
Quarter: 2024Q2

REPORT INFORMATION
  Report Type: Spontaneous
  Country: US (occurrence: None)
  Receive Date: 20240523
  Receipt Date: 20240523
  Transmission Date: 20240716
  Serious: No
  Sender: FDA-Public Use
  Company Number: 2024A104680

PATIENT

DRUGS (1)
  1. SYMBICORT [Suspect]
     Active Substance: BUDESONIDE\FORMOTEROL FUMARATE DIHYDRATE
     Indication: Asthma
     Dosage: UNKNOWN DOSE, UNKNOWN FREQUENCY UNKNOWN
     Route: 055

REACTIONS (7)
  - Confusional state [Unknown]
  - Secretion discharge [Unknown]
  - Vomiting [Unknown]
  - Dyspnoea [Unknown]
  - Nervousness [Unknown]
  - Product dose omission issue [Unknown]
  - Product prescribing error [Unknown]
